FAERS Safety Report 18300199 (Version 1)
Quarter: 2020Q3

REPORT INFORMATION
  Report Type: Report from Study
  Country: US (occurrence: US)
  Receive Date: 20200923
  Receipt Date: 20200923
  Transmission Date: 20201103
  Serious: Yes (Hospitalization)
  Sender: FDA-Public Use
  Company Number: US-ROCHE-2679866

PATIENT
  Age: 63 Year
  Sex: Male
  Weight: 127 kg

DRUGS (5)
  1. VENETOCLAX. [Suspect]
     Active Substance: VENETOCLAX
     Indication: DIFFUSE LARGE B-CELL LYMPHOMA RECURRENT
     Dosage: STRENGTH: 800MG, QD/5 DAYS, ONGOING: YES, CYCLE 2
     Route: 048
     Dates: start: 20200805
  2. CARBOPLATIN. [Suspect]
     Active Substance: CARBOPLATIN
     Indication: DIFFUSE LARGE B-CELL LYMPHOMA RECURRENT
     Dosage: STRENGTH: 10MG/ML, D2 OF CYCLE, ONGOING: YES, CYCLE 2
     Route: 042
     Dates: start: 20200806
  3. RITUXIMAB. [Suspect]
     Active Substance: RITUXIMAB
     Indication: DIFFUSE LARGE B-CELL LYMPHOMA RECURRENT
     Dosage: STRENGTH: 375MG/M2, QD1, ONGOING: YES, CYCLE 2
     Route: 042
     Dates: start: 20200805
  4. IFOSFAMIDE. [Suspect]
     Active Substance: IFOSFAMIDE
     Indication: DIFFUSE LARGE B-CELL LYMPHOMA RECURRENT
     Dosage: 13000 UNIT NOT REPORTED?STRENGTH: 5000MG/M2, D2 OF CYCLE, ONGOING: YES, CYCLE 2
     Route: 042
     Dates: start: 20200806
  5. ETOPOSIDE. [Suspect]
     Active Substance: ETOPOSIDE
     Indication: DIFFUSE LARGE B-CELL LYMPHOMA RECURRENT
     Dosage: STRENGTH: 110MG/M2, QD/ 3DAYS, ONGOING: YES, CYCLE 2
     Route: 042
     Dates: start: 20200805

REACTIONS (1)
  - Hydronephrosis [Not Recovered/Not Resolved]

NARRATIVE: CASE EVENT DATE: 20200901
